FAERS Safety Report 9360803 (Version 2)
Quarter: 2014Q1

REPORT INFORMATION
  Report Type: Report from Study
  Country: US (occurrence: US)
  Receive Date: 20130621
  Receipt Date: 20140324
  Transmission Date: 20141002
  Serious: Yes (Hospitalization, Other)
  Sender: FDA-Public Use
  Company Number: US-ELI_LILLY_AND_COMPANY-US201306003991

PATIENT
  Age: 83 Year
  Sex: Female

DRUGS (9)
  1. TERIPARATIDE [Suspect]
     Indication: OSTEOPOROSIS
     Dosage: UNK UNK, EACH EVENING
     Route: 065
     Dates: start: 201204
  2. TERIPARATIDE [Suspect]
     Dosage: UNK UNK, EACH EVENING
     Route: 065
     Dates: start: 201204
  3. PROAIR [Concomitant]
     Indication: WHEEZING
     Dosage: 2 DF, QID, AS NEEDED
     Route: 055
  4. DIGOXIN [Concomitant]
     Indication: PRODUCT USED FOR UNKNOWN INDICATION
     Route: 065
  5. DILTIAZEM [Concomitant]
     Indication: PRODUCT USED FOR UNKNOWN INDICATION
     Dosage: 240 MG, QD
     Route: 065
  6. ADVAIR [Concomitant]
     Indication: PRODUCT USED FOR UNKNOWN INDICATION
     Dosage: (250/50) 1 DF, BID
     Route: 055
  7. METOPROLOL [Concomitant]
     Indication: PRODUCT USED FOR UNKNOWN INDICATION
     Dosage: 50 MG, BID
     Route: 065
  8. COUMADIN [Concomitant]
     Indication: PRODUCT USED FOR UNKNOWN INDICATION
     Dosage: 4 MG, 4/W
     Route: 065
  9. CALTRATE [Concomitant]
     Indication: PRODUCT USED FOR UNKNOWN INDICATION
     Route: 065

REACTIONS (5)
  - Lung carcinoma cell type unspecified recurrent [Unknown]
  - Atypical pneumonia [Unknown]
  - Atrial fibrillation [Unknown]
  - Arrhythmia [Unknown]
  - Fatigue [Unknown]
